FAERS Safety Report 11434327 (Version 1)
Quarter: 2015Q3

REPORT INFORMATION
  Report Type: Spontaneous
  Country: US (occurrence: None)
  Receive Date: 20150828
  Receipt Date: 20150828
  Transmission Date: 20151125
  Serious: Yes (Life-Threatening, Hospitalization, Disabling, Other)
  Sender: FDA-Public Use
  Company Number: None

PATIENT
  Age: 35 Year
  Sex: Female
  Weight: 127.01 kg

DRUGS (1)
  1. WELCHOL [Suspect]
     Active Substance: COLESEVELAM HYDROCHLORIDE
     Indication: ABDOMINAL DISCOMFORT
     Dosage: 1  TWICE DAILY TAKEN BY MOUTH
     Route: 048
     Dates: start: 20140901, end: 20141004

REACTIONS (3)
  - Respiratory arrest [None]
  - Coma [None]
  - Pancreatitis acute [None]

NARRATIVE: CASE EVENT DATE: 20141004
